FAERS Safety Report 9209927 (Version 1)
Quarter: 2012Q4

REPORT INFORMATION
  Report Type: 
  Country: CD (occurrence: CD)
  Receive Date: 20120903
  Receipt Date: 20120903
  Transmission Date: 20130627
  Serious: Yes (Death, Hospitalization, Other)
  Sender: FDA-Public Use
  Company Number: PHHY2010CD094492

PATIENT
  Sex: Female

DRUGS (2)
  1. GLIVEC [Suspect]
     Indication: CHRONIC MYELOID LEUKAEMIA
     Dosage: UNK
     Dates: start: 20070425
  2. ANTIBIOTICS [Suspect]

REACTIONS (6)
  - Septic shock [Fatal]
  - Bone pain [Fatal]
  - Hypotension [Fatal]
  - Chronic myeloid leukaemia [Unknown]
  - Malignant neoplasm progression [Unknown]
  - Blast crisis in myelogenous leukaemia [Unknown]
